FAERS Safety Report 18253300 (Version 23)
Quarter: 2025Q4

REPORT INFORMATION
  Report Type: Report from Study
  Country: US (occurrence: US)
  Receive Date: 20200910
  Receipt Date: 20251217
  Transmission Date: 20260117
  Serious: Yes (Other)
  Sender: TAKEDA
  Company Number: US-SHIRE-US202029195

PATIENT
  Sex: Female
  Weight: 70 kg

DRUGS (24)
  1. HUMAN IMMUNOGLOBULIN G [Suspect]
     Active Substance: HUMAN IMMUNOGLOBULIN G
     Indication: Immunodeficiency common variable
     Dosage: 20 GRAM, Q2WEEKS
  2. HUMAN IMMUNOGLOBULIN G [Suspect]
     Active Substance: HUMAN IMMUNOGLOBULIN G
     Indication: Primary immunodeficiency syndrome
     Dosage: 15 GRAM, Q2WEEKS
  3. HUMAN IMMUNOGLOBULIN G [Suspect]
     Active Substance: HUMAN IMMUNOGLOBULIN G
     Dosage: 15 GRAM, 1/WEEK
  4. HUMAN IMMUNOGLOBULIN G [Suspect]
     Active Substance: HUMAN IMMUNOGLOBULIN G
     Dosage: 15 GRAM, Q2WEEKS
  5. COVID-19 VACCINE NOS [Suspect]
     Active Substance: COVID-19 VACCINE
     Indication: Product used for unknown indication
     Dosage: UNK
  6. ACETAMINOPHEN [Concomitant]
     Active Substance: ACETAMINOPHEN
     Dosage: UNK
  7. SODIUM SULFACETAMIDE SULFUR [Concomitant]
     Active Substance: MERADIMATE\SULFACETAMIDE SODIUM\SULFUR\TITANIUM DIOXIDE
     Dosage: UNK
  8. FLUTICASONE PROPIONATE [Concomitant]
     Active Substance: FLUTICASONE PROPIONATE
     Dosage: UNK
  9. CLOBETASOL PROPIONATE [Concomitant]
     Active Substance: CLOBETASOL PROPIONATE
     Dosage: UNK
  10. CYMBALTA [Concomitant]
     Active Substance: DULOXETINE HYDROCHLORIDE
     Dosage: UNK
  11. SINGULAIR [Concomitant]
     Active Substance: MONTELUKAST SODIUM
     Dosage: UNK
  12. PROTONIX [Concomitant]
     Active Substance: PANTOPRAZOLE SODIUM
     Dosage: UNK
  13. ZOCOR [Concomitant]
     Active Substance: SIMVASTATIN
     Dosage: UNK
  14. PREMARIN [Concomitant]
     Active Substance: ESTROGENS, CONJUGATED
     Dosage: UNK
  15. LEVALBUTEROL TARTRATE [Concomitant]
     Active Substance: LEVALBUTEROL TARTRATE
     Dosage: UNK
  16. LIDOCAINE [Concomitant]
     Active Substance: LIDOCAINE
     Dosage: UNK
  17. ESTRING [Concomitant]
     Active Substance: ESTRADIOL
     Dosage: UNK
  18. DIPHENHYDRAMINE [Concomitant]
     Active Substance: DIPHENHYDRAMINE
     Dosage: UNK
  19. DIPHENHYDRAMINE HYDROCHLORIDE [Concomitant]
     Active Substance: DIPHENHYDRAMINE HYDROCHLORIDE
     Dosage: UNK
  20. ADVAIR HFA [Concomitant]
     Active Substance: FLUTICASONE PROPIONATE\SALMETEROL XINAFOATE
     Dosage: UNK
  21. ZYRTEC [Concomitant]
     Active Substance: CETIRIZINE HYDROCHLORIDE
     Dosage: UNK
  22. EPINEPHRINE [Concomitant]
     Active Substance: EPINEPHRINE
     Dosage: UNK
  23. CLOBETASOL [Concomitant]
     Active Substance: CLOBETASOL
     Dosage: UNK
  24. FLONASE [Concomitant]
     Active Substance: FLUTICASONE PROPIONATE
     Dosage: UNK

REACTIONS (31)
  - Staphylococcal infection [Unknown]
  - Skin cancer [Unknown]
  - Skin irritation [Unknown]
  - Illness [Unknown]
  - Seasonal allergy [Unknown]
  - Dermatitis contact [Unknown]
  - Hordeolum [Unknown]
  - Limb discomfort [Not Recovered/Not Resolved]
  - Vaccination site vesicles [Unknown]
  - Respiratory tract infection [Unknown]
  - Product distribution issue [Unknown]
  - Product dose omission issue [Unknown]
  - Device infusion issue [Unknown]
  - Upper respiratory tract infection [Unknown]
  - Sinusitis [Not Recovered/Not Resolved]
  - Injection site swelling [Unknown]
  - Infusion site bruising [Unknown]
  - Injection site pruritus [Unknown]
  - Infusion site erythema [Unknown]
  - Pain [Unknown]
  - Cough [Unknown]
  - Feeling hot [Unknown]
  - Dyspnoea [Unknown]
  - Hypersensitivity [Unknown]
  - Pyrexia [Unknown]
  - Pruritus [Unknown]
  - Nasopharyngitis [Unknown]
  - Anxiety [Unknown]
  - Erythema [Unknown]
  - Contusion [Unknown]
  - Inappropriate schedule of product administration [Unknown]

NARRATIVE: CASE EVENT DATE: 20250723
